FAERS Safety Report 5068415-9 (Version None)
Quarter: 2006Q3

REPORT INFORMATION
  Report Type: 
  Country: None (occurrence: None)
  Receive Date: 20060802
  Receipt Date: 20050915
  Transmission Date: 20061208
  Serious: No
  Sender: FDA-Public Use
  Company Number: US-BRISTOL-MYERS SQUIBB COMPANY-13112529

PATIENT
  Age: 68 Year
  Sex: Female
  Weight: 88 kg

DRUGS (13)
  1. COUMADIN [Suspect]
     Indication: ATRIAL FIBRILLATION
  2. COUMADIN [Suspect]
     Indication: CARDIOVERSION
  3. DIGITEK [Concomitant]
  4. DIOVAN HCT [Concomitant]
  5. SOTALOL HCL [Concomitant]
  6. METFORMIN HYDROCHLORIDE [Concomitant]
  7. AMARYL [Concomitant]
  8. PAROXETINE HCL [Concomitant]
  9. PRAVACHOL [Concomitant]
  10. CLONAZEPAM [Concomitant]
  11. VITAMIN B COMPLEX CAP [Concomitant]
  12. VITAMIN CAP [Concomitant]
  13. CALCIUM GLUCONATE [Concomitant]

REACTIONS (1)
  - INTERNATIONAL NORMALISED RATIO INCREASED [None]
